FAERS Safety Report 4283645-1 (Version None)
Quarter: 2004Q1

REPORT INFORMATION
  Report Type: 
  Country: None (occurrence: None)
  Receive Date: 20040129
  Receipt Date: 20040129
  Transmission Date: 20041129
  Serious: Yes (Hospitalization)
  Sender: FDA-Public Use
  Company Number: None

PATIENT
  Age: 88 Year
  Sex: Male
  Weight: 81.7 kg

DRUGS (19)
  1. ASPIRIN [Suspect]
     Indication: AORTIC STENOSIS
     Dosage: 81 MG PO QD
     Route: 048
  2. PLAVIX [Suspect]
     Indication: AORTIC STENOSIS
     Dosage: 75 MG PO QOD
     Route: 048
  3. SINGULAIR [Concomitant]
  4. LASIX [Concomitant]
  5. DIOVAN [Concomitant]
  6. XOPENEX [Concomitant]
  7. ATROVENT [Concomitant]
  8. PULMICORT [Concomitant]
  9. ALBUTEROL [Concomitant]
  10. GLUCOPHAGE [Concomitant]
  11. NASACORT [Concomitant]
  12. CLARITIN-D [Concomitant]
  13. VIT B [Concomitant]
  14. ELAVIL [Concomitant]
  15. VIT C [Concomitant]
  16. FLOMAX [Concomitant]
  17. HYOSCYMAINE [Concomitant]
  18. CARAFATE [Concomitant]
  19. ZANTAC [Concomitant]

REACTIONS (4)
  - ABDOMINAL PAIN [None]
  - GASTRITIS EROSIVE [None]
  - MELAENA [None]
  - RECTAL HAEMORRHAGE [None]
